FAERS Safety Report 6128750-X (Version None)
Quarter: 2009Q1

REPORT INFORMATION
  Report Type: 
  Country: None (occurrence: None)
  Receive Date: 20090319
  Receipt Date: 20090305
  Transmission Date: 20090719
  Serious: Yes (Other)
  Sender: FDA-Public Use
  Company Number: 20090068

PATIENT
  Age: 35 Year
  Sex: Female

DRUGS (1)
  1. VENOFER [Suspect]
     Indication: IRON DEFICIENCY
     Dosage: 200 MG (100MG, 2X'S DAY) INTRAVENOUS
     Route: 042
     Dates: start: 20081112, end: 20081229

REACTIONS (1)
  - ERYTHEMA MULTIFORME [None]
